FAERS Safety Report 19947450 (Version 1)
Quarter: 2021Q4

REPORT INFORMATION
  Report Type: Spontaneous
  Country: US (occurrence: US)
  Receive Date: 20211013
  Receipt Date: 20211013
  Transmission Date: 20220303
  Serious: No
  Sender: FDA-Public Use
  Company Number: US-STRIDES ARCOLAB LIMITED-2021SP026183

PATIENT
  Sex: Female

DRUGS (1)
  1. DEXTROAMPHETAMINE [Suspect]
     Active Substance: DEXTROAMPHETAMINE
     Indication: Narcolepsy
     Dosage: UNK
     Route: 065

REACTIONS (1)
  - Maternal exposure during pregnancy [Unknown]
